FAERS Safety Report 7113569-3 (Version None)
Quarter: 2010Q4

REPORT INFORMATION
  Report Type: 
  Country: None (occurrence: None)
  Receive Date: 20101119
  Receipt Date: 20101027
  Transmission Date: 20110411
  Serious: Yes (Hospitalization)
  Sender: FDA-Public Use
  Company Number: DE-AMGEN-DEUCT2010001982

PATIENT

DRUGS (4)
  1. ENBREL [Suspect]
     Indication: PSORIASIS
     Dosage: 50 MG, QWK
     Route: 058
     Dates: start: 20080708, end: 20100101
  2. METAMIZOLE SODIUM [Concomitant]
     Dosage: UNKNOWN DOSE ONE TIME PER DAY
  3. VERAPAMIL [Concomitant]
     Dosage: UNKNOWN
  4. DICLOFENAC SODIUM [Concomitant]
     Dosage: UNKNOWN DOSE ONE TIME PER DAY

REACTIONS (1)
  - HIP ARTHROPLASTY [None]
